FAERS Safety Report 8055666-4 (Version None)
Quarter: 2012Q1

REPORT INFORMATION
  Report Type: 
  Country: None (occurrence: None)
  Receive Date: 20120119
  Receipt Date: 20120112
  Transmission Date: 20120608
  Serious: Yes (Other)
  Sender: FDA-Public Use
  Company Number: US-BAYER-2012-004577

PATIENT
  Age: 68 Year
  Sex: Male
  Weight: 76 kg

DRUGS (1)
  1. ALKA-SELTZER PLUS SEVERE SINUS CONGESTION + COUGH LIQUID GELS [Suspect]
     Indication: RHINORRHOEA
     Dosage: 2 DF, PRN
     Route: 048
     Dates: start: 20120111, end: 20120111

REACTIONS (2)
  - FOREIGN BODY [None]
  - CHOKING [None]
